FAERS Safety Report 8773554 (Version 1)
Quarter: 2012Q4

REPORT INFORMATION
  Report Type: 
  Country: US (occurrence: US)
  Receive Date: 20120907
  Receipt Date: 20120907
  Transmission Date: 20130627
  Serious: No
  Sender: FDA-Public Use
  Company Number: US-PFIZER INC-2012220441

PATIENT
  Age: 51 Year
  Sex: Female
  Weight: 102.49 kg

DRUGS (8)
  1. LYRICA [Suspect]
     Indication: FIBROMYALGIA
     Dosage: 50 mg, 2x/day
     Route: 048
     Dates: start: 201205, end: 20120823
  2. SYNTHROID [Concomitant]
     Indication: HYPOTHYROIDISM
     Dosage: 50 ug, 1x/day
     Route: 048
  3. HYDROCHLOROTHIAZIDE/LOSARTAN [Concomitant]
     Indication: HYPERTENSION
     Dosage: 50/12.5 mg, 1x/day
     Route: 048
  4. CYMBALTA [Concomitant]
     Dosage: 120 mg, UNK
  5. PREMARIN [Concomitant]
     Dosage: 1.25 mg, 1x/day
  6. FENTANYL [Concomitant]
     Dosage: 100 ug, UNK
  7. VERAPAMIL [Concomitant]
     Dosage: 240 mg, 2x/day
     Route: 048
  8. KLONOPIN [Concomitant]
     Dosage: 1 mg, 2x/day

REACTIONS (1)
  - Drug ineffective [Unknown]
